FAERS Safety Report 25983038 (Version 1)
Quarter: 2025Q4

REPORT INFORMATION
  Report Type: Spontaneous
  Country: GB (occurrence: GB)
  Receive Date: 20251031
  Receipt Date: 20251031
  Transmission Date: 20260117
  Serious: Yes (Other)
  Sender: CIPLA
  Company Number: GB-CIPLA LTD.-2025GB13438

PATIENT

DRUGS (2)
  1. DONEPEZIL [Suspect]
     Active Substance: DONEPEZIL
     Indication: Dementia Alzheimer^s type
     Dosage: 10 MILLIGRAM, QD (10 MG WITH FOOD IN EVENING)
     Route: 065
     Dates: start: 20240901
  2. SIMVASTATIN [Concomitant]
     Active Substance: SIMVASTATIN
     Indication: Adverse drug reaction
     Dosage: UNK
     Route: 065
     Dates: start: 20160101

REACTIONS (1)
  - Neuropathy peripheral [Not Recovered/Not Resolved]

NARRATIVE: CASE EVENT DATE: 20241201
